FAERS Safety Report 5013927-7 (Version None)
Quarter: 2006Q2

REPORT INFORMATION
  Report Type: 
  Country: None (occurrence: None)
  Receive Date: 20060525
  Receipt Date: 20060520
  Transmission Date: 20061013
  Serious: Yes (Other)
  Sender: FDA-Public Use
  Company Number: 220210

PATIENT
  Age: 71 Year
  Sex: Female

DRUGS (6)
  1. MABTHERA [Suspect]
     Indication: NON-HODGKIN'S LYMPHOMA
     Dosage: INTRAVENOUS
     Route: 042
     Dates: start: 20050101, end: 20050101
  2. AMIODARONE HCL [Suspect]
     Indication: DRUG USE FOR UNKNOWN INDICATION
     Dates: start: 20050101, end: 20050101
  3. CYCLOPHOSPHAMIDE (DOXORUBICIN/ DOXORUBICIN HYDROCHLORIDE) [Concomitant]
  4. VINCRISTINE [Concomitant]
  5. PREDNISONE TAB [Concomitant]
  6. DOXORUBICIN HYDROCHLORIDE [Concomitant]

REACTIONS (1)
  - PULMONARY FIBROSIS [None]
